FAERS Safety Report 14141575 (Version 1)
Quarter: 2017Q4

REPORT INFORMATION
  Report Type: Spontaneous
  Country: US (occurrence: US)
  Receive Date: 20171030
  Receipt Date: 20171030
  Transmission Date: 20180321
  Serious: No
  Sender: FDA-Public Use
  Company Number: US-BIOGEN-2017BI00476798

PATIENT
  Sex: Female
  Weight: 53.57 kg

DRUGS (1)
  1. TYSABRI [Suspect]
     Active Substance: NATALIZUMAB
     Indication: MULTIPLE SCLEROSIS
     Route: 048

REACTIONS (2)
  - Chills [Unknown]
  - Nasopharyngitis [Unknown]
